FAERS Safety Report 8690333 (Version 2)
Quarter: 2013Q2

REPORT INFORMATION
  Report Type: Spontaneous
  Country: US (occurrence: US)
  Receive Date: 20120727
  Receipt Date: 20130522
  Transmission Date: 20140414
  Serious: Yes (Hospitalization)
  Sender: FDA-Public Use
  Company Number: US-ASTRAZENECA-2012SE23517

PATIENT
  Age: 63 Year
  Sex: Female

DRUGS (1)
  1. SEROQUEL [Suspect]
     Route: 048

REACTIONS (3)
  - Pneumonia [Unknown]
  - Parkinson^s disease [Unknown]
  - Speech disorder [Unknown]
